FAERS Safety Report 14297347 (Version 1)
Quarter: 2017Q4

REPORT INFORMATION
  Report Type: Spontaneous
  Country: FR (occurrence: FR)
  Receive Date: 20171218
  Receipt Date: 20171218
  Transmission Date: 20180321
  Serious: Yes (Other)
  Sender: FDA-Public Use
  Company Number: FR-ASTRAZENECA-2017SF27710

PATIENT
  Age: 5 Month
  Sex: Male
  Weight: 8.3 kg

DRUGS (4)
  1. VENTOLINE [Concomitant]
     Active Substance: ALBUTEROL
  2. PULMICORT TURBUHALER [Suspect]
     Active Substance: BUDESONIDE
     Indication: BRONCHIOLITIS
     Route: 049
     Dates: start: 20170814, end: 20171115
  3. FORLAX [Concomitant]
     Active Substance: POLYETHYLENE GLYCOL 4000
  4. ZYMA D2 [Concomitant]

REACTIONS (1)
  - Acquired macroglossia [Recovered/Resolved]

NARRATIVE: CASE EVENT DATE: 20171109
